FAERS Safety Report 11348670 (Version 1)
Quarter: 2015Q3

REPORT INFORMATION
  Report Type: Spontaneous
  Country: US (occurrence: US)
  Receive Date: 20150806
  Receipt Date: 20150806
  Transmission Date: 20151125
  Serious: No
  Sender: FDA-Public Use
  Company Number: ALCN2015US004375

PATIENT
  Sex: Female

DRUGS (1)
  1. HYPOTEARS [Suspect]
     Active Substance: POLYETHYLENE GLYCOL 400\POLYVINYL ALCOHOL
     Indication: PRODUCT USED FOR UNKNOWN INDICATION
     Dosage: 1 DF, UNK
     Route: 047

REACTIONS (1)
  - Expired product administered [Unknown]
